FAERS Safety Report 12244442 (Version 3)
Quarter: 2017Q2

REPORT INFORMATION
  Report Type: Spontaneous
  Country: US (occurrence: US)
  Receive Date: 20160407
  Receipt Date: 20170526
  Transmission Date: 20170830
  Serious: No
  Sender: FDA-Public Use
  Company Number: US-ASTRAZENECA-2016SE36055

PATIENT
  Sex: Female

DRUGS (3)
  1. DALIRESP [Suspect]
     Active Substance: ROFLUMILAST
     Route: 048
  2. DALIRESP [Suspect]
     Active Substance: ROFLUMILAST
     Route: 048
  3. DALIRESP [Suspect]
     Active Substance: ROFLUMILAST
     Route: 048

REACTIONS (14)
  - Drug intolerance [Unknown]
  - Diarrhoea [Recovered/Resolved]
  - Intentional product misuse [Unknown]
  - Weight decreased [Unknown]
  - Stress [Unknown]
  - Drug dose omission [Unknown]
  - Fatigue [Unknown]
  - Memory impairment [Unknown]
  - Malaise [Unknown]
  - Ill-defined disorder [Unknown]
  - Anaemia [Unknown]
  - Haemorrhage [Unknown]
  - Adverse event [Unknown]
  - Gastrointestinal disorder [Unknown]
